FAERS Safety Report 15680916 (Version 1)
Quarter: 2018Q4

REPORT INFORMATION
  Report Type: Spontaneous
  Country: US (occurrence: US)
  Receive Date: 20181203
  Receipt Date: 20181203
  Transmission Date: 20190205
  Serious: No
  Sender: FDA-Public Use
  Company Number: US-MYLANLABS-2018M1087402

PATIENT

DRUGS (1)
  1. ESTRADIOL VAGINAL CREAM USP [Suspect]
     Active Substance: ESTRADIOL
     Indication: VULVOVAGINAL DRYNESS
     Dosage: UNK UNK, QD
     Dates: start: 20181107, end: 20181107

REACTIONS (2)
  - Application site pain [Not Recovered/Not Resolved]
  - Application site discomfort [Not Recovered/Not Resolved]

NARRATIVE: CASE EVENT DATE: 20181107
